FAERS Safety Report 8402305-6 (Version None)
Quarter: 2012Q2

REPORT INFORMATION
  Report Type: 
  Country: None (occurrence: None)
  Receive Date: 20120601
  Receipt Date: 20120529
  Transmission Date: 20120825
  Serious: Yes (Death, Life-Threatening)
  Sender: FDA-Public Use
  Company Number: DE-B.I. PHARMACEUTICALS,INC./RIDGEFIELD-2012-DE-01307DE

PATIENT
  Sex: Female
  Weight: 100 kg

DRUGS (4)
  1. TORSEMIDE [Concomitant]
     Indication: CARDIAC FAILURE
     Dosage: 10 NR
  2. LOSARTAN POTASSIUM AND HYDROCHLOROTHIAZIDE [Concomitant]
     Indication: HYPERTENSION
     Dosage: 1 ANZ
  3. DIGIMERCK MINOR [Concomitant]
     Indication: CARDIAC FAILURE
     Dosage: 0.07 NR
  4. PRADAXA [Suspect]
     Indication: ATRIAL FIBRILLATION
     Dosage: 220 MG
     Dates: start: 20110913

REACTIONS (3)
  - SUBDURAL HAEMATOMA [None]
  - FALL [None]
  - RESPIRATORY ARREST [None]
